FAERS Safety Report 6535690-0 (Version None)
Quarter: 2010Q1

REPORT INFORMATION
  Report Type: 
  Country: None (occurrence: None)
  Receive Date: 20100106
  Receipt Date: 20091224
  Transmission Date: 20100710
  Serious: Yes (Hospitalization)
  Sender: FDA-Public Use
  Company Number: 002805

PATIENT
  Sex: Female
  Weight: 60 kg

DRUGS (3)
  1. VIMPAT [Suspect]
     Indication: EPILEPSY
     Dosage: 200 MG BID
     Dates: start: 20090601, end: 20091102
  2. KEPPRA [Concomitant]
  3. LYRICA [Concomitant]

REACTIONS (1)
  - MENOMETRORRHAGIA [None]
